FAERS Safety Report 15157339 (Version 3)
Quarter: 2018Q4

REPORT INFORMATION
  Report Type: Other
  Country: CH (occurrence: CH)
  Receive Date: 20180718
  Receipt Date: 20181011
  Transmission Date: 20190204
  Serious: Yes (Other)
  Sender: FDA-Public Use
  Company Number: CH-ACTELION-A-CH2018-175446

PATIENT
  Age: 17 Year
  Sex: Male

DRUGS (1)
  1. BOSENTAN. [Suspect]
     Active Substance: BOSENTAN
     Indication: PORTOPULMONARY HYPERTENSION
     Dosage: UNK
     Route: 048

REACTIONS (2)
  - Portal shunt procedure [Unknown]
  - Liver transplant [Unknown]
